FAERS Safety Report 10617394 (Version 4)
Quarter: 2015Q2

REPORT INFORMATION
  Report Type: Spontaneous
  Country: US (occurrence: US)
  Receive Date: 20141201
  Receipt Date: 20150609
  Transmission Date: 20150821
  Serious: Yes (Hospitalization, Other)
  Sender: FDA-Public Use
  Company Number: US-009507513-1411USA012543

PATIENT
  Sex: Female

DRUGS (6)
  1. FOSAMAX [Suspect]
     Active Substance: ALENDRONATE SODIUM
     Indication: OSTEOPOROSIS
     Dosage: 70 MG, UNK
     Route: 048
     Dates: start: 200105
  2. FOSAMAX [Suspect]
     Active Substance: ALENDRONATE SODIUM
     Dosage: UNK
     Route: 048
     Dates: start: 2000, end: 2012
  3. ALENDRONATE SODIUM. [Suspect]
     Active Substance: ALENDRONATE SODIUM
     Indication: OSTEOPOROSIS
     Dosage: 70 MG, UNK
     Route: 048
     Dates: start: 20100122, end: 20121214
  4. ASCORBIC ACID. [Concomitant]
     Active Substance: ASCORBIC ACID
     Dosage: 1 QD
     Dates: start: 2000
  5. CALCIUM (UNSPECIFIED) [Concomitant]
     Active Substance: CALCIUM
     Dosage: 600 MG, BID
     Dates: start: 2000
  6. VITAMINS (UNSPECIFIED) [Concomitant]
     Active Substance: VITAMINS
     Dosage: 1 QD
     Dates: start: 2000

REACTIONS (12)
  - Blood cholesterol increased [Unknown]
  - Femur fracture [Unknown]
  - Fracture delayed union [Unknown]
  - Stress fracture [Unknown]
  - Muscular weakness [Unknown]
  - Colon cancer [Unknown]
  - Cataract [Unknown]
  - Femur fracture [Unknown]
  - Low turnover osteopathy [Unknown]
  - Cataract [Unknown]
  - Dental caries [Unknown]
  - Wrist fracture [Unknown]

NARRATIVE: CASE EVENT DATE: 20000410
